FAERS Safety Report 20539064 (Version 1)
Quarter: 2022Q1

REPORT INFORMATION
  Report Type: Spontaneous
  Country: IT (occurrence: IT)
  Receive Date: 20220302
  Receipt Date: 20220302
  Transmission Date: 20220423
  Serious: Yes (Other)
  Sender: FDA-Public Use
  Company Number: IT-JNJFOC-20211045137

PATIENT
  Age: 20 Year
  Sex: Female
  Weight: 80 kg

DRUGS (5)
  1. SPORANOX [Suspect]
     Active Substance: ITRACONAZOLE
     Indication: Product used for unknown indication
     Dosage: 2 TABLETS
     Route: 048
  2. TACHIPIRINA [Suspect]
     Active Substance: ACETAMINOPHEN
     Indication: Product used for unknown indication
     Dosage: FLASHTAB 500
     Route: 065
  3. XANAX [Suspect]
     Active Substance: ALPRAZOLAM
     Indication: Product used for unknown indication
     Dosage: DROPS
     Route: 065
  4. ARCOXIA [Suspect]
     Active Substance: ETORICOXIB
     Route: 065
  5. KETOPROFEN LYSINE [Suspect]
     Active Substance: KETOPROFEN LYSINE
     Dosage: 10 FILM-COATED TABLETS
     Route: 065

REACTIONS (3)
  - Intentional self-injury [Unknown]
  - Suicide attempt [Unknown]
  - Extra dose administered [Unknown]
